FAERS Safety Report 16644565 (Version 24)
Quarter: 2023Q1

REPORT INFORMATION
  Report Type: Report from Study
  Country: GB (occurrence: GB)
  Receive Date: 20190729
  Receipt Date: 20230103
  Transmission Date: 20230417
  Serious: Yes (Hospitalization, Other)
  Sender: FDA-Public Use
  Company Number: GB-ROCHE-1657697

PATIENT
  Age: 75 Year
  Sex: Female

DRUGS (133)
  1. TRASTUZUMAB [Suspect]
     Active Substance: TRASTUZUMAB
     Indication: Breast cancer
     Dosage: 600 MILLIGRAM, Q3W
     Route: 058
  2. TRASTUZUMAB [Suspect]
     Active Substance: TRASTUZUMAB
     Indication: HER2 positive breast cancer
     Dosage: 600 MILLIGRAM, Q3W
     Route: 058
     Dates: start: 20150721, end: 20151126
  3. TRASTUZUMAB [Suspect]
     Active Substance: TRASTUZUMAB
     Indication: Breast cancer metastatic
     Dosage: 600 MG, Q3W
     Route: 058
     Dates: start: 20151126, end: 20151126
  4. TRASTUZUMAB [Suspect]
     Active Substance: TRASTUZUMAB
     Dosage: 600 MG, Q3W
     Route: 058
     Dates: start: 20150721, end: 20150721
  5. TRASTUZUMAB [Suspect]
     Active Substance: TRASTUZUMAB
     Dosage: 600 MILLIGRAM, BID
     Route: 058
  6. TRASTUZUMAB [Suspect]
     Active Substance: TRASTUZUMAB
     Dosage: 1200 MILLIGRAM, Q3W
     Route: 058
     Dates: start: 20151126, end: 20151126
  7. TRASTUZUMAB [Suspect]
     Active Substance: TRASTUZUMAB
     Dosage: 600 MILLIGRAM, Q3W
     Route: 058
     Dates: start: 20150721, end: 20150721
  8. TRASTUZUMAB [Suspect]
     Active Substance: TRASTUZUMAB
     Dosage: 600 MG Q3W
     Route: 058
     Dates: start: 20150721, end: 20150721
  9. TRASTUZUMAB [Suspect]
     Active Substance: TRASTUZUMAB
     Dosage: 600 MILLIGRAM, Q3W
     Route: 058
     Dates: start: 20150721, end: 20151126
  10. ANASTROZOLE [Suspect]
     Active Substance: ANASTROZOLE
     Indication: Breast cancer
     Dosage: 1 MG, QD, STARTED ON 15-JAN-2016
     Route: 048
  11. ANASTROZOLE [Suspect]
     Active Substance: ANASTROZOLE
     Indication: Breast cancer metastatic
     Dosage: 1 MILLIGRAM, QD
     Route: 048
  12. ANASTROZOLE [Suspect]
     Active Substance: ANASTROZOLE
     Dosage: 10 MILLIGRAM, QD
     Route: 048
  13. ANASTROZOLE [Suspect]
     Active Substance: ANASTROZOLE
     Dosage: UNK
     Route: 065
  14. ANASTROZOLE [Suspect]
     Active Substance: ANASTROZOLE
     Dosage: 178.041 MILLIGRAM, QD
     Route: 048
  15. ANASTROZOLE [Suspect]
     Active Substance: ANASTROZOLE
     Dosage: 1 MG, 1X/DAY, START 15-JAN-2016
     Route: 048
  16. DOCETAXEL [Suspect]
     Active Substance: DOCETAXEL
     Indication: Breast cancer
     Dosage: 170 MILLIGRAM, Q3W
     Route: 042
  17. DOCETAXEL [Suspect]
     Active Substance: DOCETAXEL
     Indication: HER2 positive breast cancer
     Dosage: 170 MILLIGRAM, Q3W
     Route: 042
     Dates: start: 20150721, end: 20150807
  18. DOCETAXEL [Suspect]
     Active Substance: DOCETAXEL
     Indication: Breast cancer metastatic
     Dosage: 170 MILLIGRAM, Q3W
     Route: 042
     Dates: start: 20150721, end: 20150721
  19. DOCETAXEL [Suspect]
     Active Substance: DOCETAXEL
     Dosage: 170 MILLIGRAM, Q3W
     Route: 042
     Dates: start: 20150807
  20. DOCETAXEL [Suspect]
     Active Substance: DOCETAXEL
     Dosage: 170 MILLIGRAM, Q3W
     Route: 042
     Dates: start: 20150807, end: 20150807
  21. DOCETAXEL [Suspect]
     Active Substance: DOCETAXEL
     Dosage: UNK
     Route: 065
  22. HYALURONIDASE (HUMAN RECOMBINANT) [Suspect]
     Active Substance: HYALURONIDASE (HUMAN RECOMBINANT)
     Indication: HER2 positive breast cancer
     Dosage: 600 MILLIGRAM, Q3W
     Route: 058
     Dates: start: 20150721, end: 20151126
  23. HYALURONIDASE [Suspect]
     Active Substance: HYALURONIDASE
     Indication: Breast cancer
     Dosage: 600 MILLIGRAM, Q3W
     Route: 058
     Dates: start: 20150721, end: 20151126
  24. PERTUZUMAB [Suspect]
     Active Substance: PERTUZUMAB
     Indication: Breast cancer metastatic
     Dosage: 420 MILLIGRAM, Q3W
     Route: 042
  25. PERTUZUMAB [Suspect]
     Active Substance: PERTUZUMAB
     Indication: Breast cancer
     Dosage: 420 MG, EVERY 3 WEEKS
     Route: 042
     Dates: start: 20150721, end: 20151126
  26. PERTUZUMAB [Suspect]
     Active Substance: PERTUZUMAB
     Dosage: 420 MILLIGRAM, Q3W
     Route: 042
     Dates: start: 20151126, end: 20151126
  27. PERTUZUMAB [Suspect]
     Active Substance: PERTUZUMAB
     Dosage: 420 MILLIGRAM, Q3W
     Route: 042
     Dates: start: 20150721, end: 20150721
  28. PERTUZUMAB [Suspect]
     Active Substance: PERTUZUMAB
     Dosage: UNK
     Route: 065
  29. PERTUZUMAB [Suspect]
     Active Substance: PERTUZUMAB
     Dosage: 420 MILLIGRAM, Q3W
     Route: 042
     Dates: start: 20151126
  30. RAMIPRIL [Concomitant]
     Active Substance: RAMIPRIL
     Indication: Prophylaxis
     Dosage: 5 MILLIGRAM, QD
     Route: 065
  31. RAMIPRIL [Concomitant]
     Active Substance: RAMIPRIL
     Indication: Ejection fraction decreased
     Dosage: 2 DOSAGE FORM, START 15-APR-2016
     Route: 048
     Dates: end: 201605
  32. RAMIPRIL [Concomitant]
     Active Substance: RAMIPRIL
     Dosage: 7.5 MG, QD, START MAY-2016
     Route: 048
     Dates: end: 201605
  33. RAMIPRIL [Concomitant]
     Active Substance: RAMIPRIL
     Dosage: UNK, QD, START 15-APR-2016
     Route: 048
     Dates: end: 201605
  34. RAMIPRIL [Concomitant]
     Active Substance: RAMIPRIL
     Dosage: 3.75 MG, QD, START MAY-2016
     Route: 048
     Dates: end: 201606
  35. RAMIPRIL [Concomitant]
     Active Substance: RAMIPRIL
     Dosage: 5 MILLIGRAM, BID, START 2016
     Route: 048
  36. RAMIPRIL [Concomitant]
     Active Substance: RAMIPRIL
     Dosage: UNK, MONTHLY, START 15-APR-2016
     Route: 048
     Dates: end: 201605
  37. RAMIPRIL [Concomitant]
     Active Substance: RAMIPRIL
     Dosage: 3.75 MG, QD, START MAY-2016
     Route: 048
  38. RAMIPRIL [Concomitant]
     Active Substance: RAMIPRIL
     Dosage: UNK UNK, QD
     Route: 048
     Dates: start: 20160415, end: 201605
  39. RAMIPRIL [Concomitant]
     Active Substance: RAMIPRIL
     Dosage: 7.5 MILLIGRAM, QD
     Route: 048
     Dates: start: 201605, end: 201605
  40. RAMIPRIL [Concomitant]
     Active Substance: RAMIPRIL
     Dosage: 2 DOSAGE FORM
     Route: 048
     Dates: start: 20160415, end: 201605
  41. RAMIPRIL [Concomitant]
     Active Substance: RAMIPRIL
     Dosage: 3.75 MILLIGRAM, QD
     Route: 048
     Dates: start: 201605, end: 201606
  42. RAMIPRIL [Concomitant]
     Active Substance: RAMIPRIL
     Dosage: 5 MILLIGRAM, BID
     Route: 048
     Dates: start: 2016
  43. BISOPROLOL [Concomitant]
     Active Substance: BISOPROLOL
     Indication: Ejection fraction decreased
     Dosage: 5 MILLIGRAM, ONCE A DAY
     Route: 048
  44. BISOPROLOL [Concomitant]
     Active Substance: BISOPROLOL
     Indication: Prophylaxis
     Dosage: 2.5 MILLIGRAM,
     Route: 048
     Dates: start: 20160415
  45. BISOPROLOL [Concomitant]
     Active Substance: BISOPROLOL
     Dosage: 2.5 MILLIGRAM,
     Route: 048
     Dates: start: 20160121
  46. BISOPROLOL [Concomitant]
     Active Substance: BISOPROLOL
     Dosage: 1.25 MILLIGRAM,
     Route: 048
     Dates: start: 20160121
  47. BISOPROLOL [Concomitant]
     Active Substance: BISOPROLOL
     Dosage: 2.5 MILLIGRAM, QD,
     Route: 048
     Dates: start: 201603
  48. BISOPROLOL [Concomitant]
     Active Substance: BISOPROLOL
     Dosage: 2.5 MG,
     Route: 048
     Dates: start: 20160415
  49. BISOPROLOL [Concomitant]
     Active Substance: BISOPROLOL
     Dosage: 1.25 MG, UNK
     Route: 048
     Dates: start: 20160121
  50. BISOPROLOL [Concomitant]
     Active Substance: BISOPROLOL
     Dosage: 2.5 MG, 1X/DAY
     Route: 048
     Dates: start: 201603
  51. FUROSEMIDE [Concomitant]
     Active Substance: FUROSEMIDE
     Indication: Dyspnoea
     Dosage: 40 MG, QD (START DATE11-DEC-2015)
     Route: 048
  52. FUROSEMIDE [Concomitant]
     Active Substance: FUROSEMIDE
     Dosage: 40 MG, UNK
     Route: 048
     Dates: start: 20151211
  53. FUROSEMIDE [Concomitant]
     Active Substance: FUROSEMIDE
     Indication: Dyspnoea
     Dosage: 100 MG, QD (START: 06-DEC-2015)
     Route: 042
     Dates: end: 20151207
  54. FUROSEMIDE [Concomitant]
     Active Substance: FUROSEMIDE
     Dosage: 50 MG, QD, START 06-DEC-2015 50 MG, 2X/DAY
     Route: 042
     Dates: end: 20151207
  55. ACETAMINOPHEN [Concomitant]
     Active Substance: ACETAMINOPHEN
     Indication: Premedication
     Dosage: 500 MILLIGRAM, PRN
     Route: 065
  56. ACETAMINOPHEN [Concomitant]
     Active Substance: ACETAMINOPHEN
     Indication: Chemotherapy side effect prophylaxis
     Dosage: 1 G, EVERY 3 WEEKS
     Route: 048
     Dates: start: 20150721, end: 20151126
  57. ACETAMINOPHEN [Concomitant]
     Active Substance: ACETAMINOPHEN
     Indication: Retinal detachment
     Dosage: 1 G, EVERY 3 WEEKS
     Route: 048
     Dates: start: 20160531
  58. ACETAMINOPHEN [Concomitant]
     Active Substance: ACETAMINOPHEN
     Indication: Headache
  59. CYCLOPENTOLATE HYDROCHLORIDE [Concomitant]
     Active Substance: CYCLOPENTOLATE HYDROCHLORIDE
     Indication: Retinal detachment
     Dosage: 1 GTT DROPS
     Route: 047
     Dates: start: 20160601, end: 20160610
  60. CYCLOPENTOLATE HYDROCHLORIDE [Concomitant]
     Active Substance: CYCLOPENTOLATE HYDROCHLORIDE
     Dosage: 1 GTT DROPS
     Route: 047
     Dates: start: 20160601, end: 20160610
  61. LISINOPRIL [Concomitant]
     Active Substance: LISINOPRIL
     Indication: Dyspnoea
     Dosage: 5 MILLIGRAM
     Route: 048
     Dates: start: 20151218, end: 20160121
  62. LISINOPRIL [Concomitant]
     Active Substance: LISINOPRIL
     Dosage: 2.5 MILLIGRAM,
     Route: 048
     Dates: start: 20160121, end: 20160415
  63. LISINOPRIL [Concomitant]
     Active Substance: LISINOPRIL
     Dosage: 5 MG
     Route: 048
     Dates: start: 20151218, end: 20160121
  64. LISINOPRIL [Concomitant]
     Active Substance: LISINOPRIL
     Dosage: 2.5 MG
     Route: 048
     Dates: start: 20160121, end: 20160415
  65. METOCLOPRAMIDE [Concomitant]
     Active Substance: METOCLOPRAMIDE
     Indication: Prophylaxis
     Dosage: 10 MILLIGRAM, AS NECESSARY
     Route: 048
     Dates: start: 20150721, end: 20150727
  66. METOCLOPRAMIDE [Concomitant]
     Active Substance: METOCLOPRAMIDE
     Indication: Nausea
     Dosage: 10 MILLIGRAM, PRN,AS NEEDED
     Route: 048
     Dates: start: 20150721
  67. METOCLOPRAMIDE [Concomitant]
     Active Substance: METOCLOPRAMIDE
     Dosage: 10 MILLIGRAM, AS NECESSARY
     Route: 048
     Dates: start: 20150730
  68. METOCLOPRAMIDE [Concomitant]
     Active Substance: METOCLOPRAMIDE
     Dosage: UNK
     Route: 065
     Dates: start: 20150721, end: 20150727
  69. DIGOXIN [Concomitant]
     Active Substance: DIGOXIN
     Indication: Product used for unknown indication
     Dosage: (START DATE: 21-JAN-2016) 62.5 MICROGRAM
     Route: 048
  70. DIGOXIN [Concomitant]
     Active Substance: DIGOXIN
     Dosage: 500 MG, PRN, START JAN-2017
     Route: 065
  71. DIGOXIN [Concomitant]
     Active Substance: DIGOXIN
     Dosage: 500 MILLIGRAM
     Route: 048
     Dates: start: 201701
  72. DIGOXIN [Concomitant]
     Active Substance: DIGOXIN
     Dosage: 62.5 MICROGRAM
     Route: 048
     Dates: start: 20160121
  73. COCODAMOL [Concomitant]
     Active Substance: ACETAMINOPHEN\CODEINE PHOSPHATE
     Indication: Product used for unknown indication
     Dosage: 500 MG, PRN
     Route: 048
  74. COCODAMOL [Concomitant]
     Active Substance: ACETAMINOPHEN\CODEINE PHOSPHATE
     Dosage: 500 MILLIGRAM, PRN
     Route: 048
     Dates: start: 20150720
  75. DALTEPARIN [Concomitant]
     Active Substance: DALTEPARIN
     Indication: Pleural effusion
     Dosage: 1 DOSAGE FORM, ONCE A DAY
     Route: 065
  76. DALTEPARIN [Concomitant]
     Active Substance: DALTEPARIN
     Dosage: UNK, START 06-DEC-2015
     Route: 058
     Dates: end: 20151206
  77. DALTEPARIN [Concomitant]
     Active Substance: DALTEPARIN
     Dosage: 10000 INTERNATIONAL UNIT, START DATE 06-DEC-2015
     Route: 058
     Dates: end: 20151206
  78. DALTEPARIN [Concomitant]
     Active Substance: DALTEPARIN
     Dosage: 10000 INTERNATIONAL UNIT, START DATE 06-DEC-2015
     Route: 058
     Dates: end: 20151206
  79. ATORVASTATIN [Concomitant]
     Active Substance: ATORVASTATIN
     Indication: Prophylaxis
     Dosage: 20 MG, 1X/DAY
     Route: 048
  80. ATORVASTATIN [Concomitant]
     Active Substance: ATORVASTATIN
     Dosage: 20 MILLIGRAM, QD,
     Route: 048
     Dates: start: 20161130
  81. ATORVASTATIN [Concomitant]
     Active Substance: ATORVASTATIN
     Dosage: 20 MG, DAILY
     Route: 048
     Dates: start: 20161130
  82. PREDNISOLONE [Concomitant]
     Active Substance: PREDNISOLONE
     Indication: Retinal detachment
     Dosage: 40 MG, QD (START 01-JUN-2016)
     Route: 048
     Dates: end: 20160606
  83. PREDNISOLONE [Concomitant]
     Active Substance: PREDNISOLONE
     Dosage: 40 MG, DAILY
     Route: 048
     Dates: start: 20160601, end: 20160606
  84. CHLORPHENIRAMINE MALEATE [Concomitant]
     Active Substance: CHLORPHENIRAMINE MALEATE
     Indication: Premedication
     Dosage: 10 MILLIGRAM, EVERY WEEK
     Route: 042
  85. CHLORPHENIRAMINE MALEATE [Concomitant]
     Active Substance: CHLORPHENIRAMINE MALEATE
     Indication: Chemotherapy side effect prophylaxis
     Dosage: 10 MG, EVERY 3 WEEKS
     Route: 042
     Dates: start: 20150721, end: 20151126
  86. IOPIDINE [Concomitant]
     Active Substance: APRACLONIDINE HYDROCHLORIDE
     Indication: Product used for unknown indication
     Dosage: 1 GTT DROPS
     Route: 047
     Dates: start: 20160601, end: 20160629
  87. TOBRADEX [Concomitant]
     Active Substance: DEXAMETHASONE\TOBRAMYCIN
     Indication: Retinal detachment
     Dosage: 1 GTT DROPS (01-JUN-2016)
     Route: 047
  88. TOBRADEX [Concomitant]
     Active Substance: DEXAMETHASONE\TOBRAMYCIN
     Dosage: 1 GTT DROPS (01-JUN-2016)
     Route: 047
  89. TOBRADEX [Concomitant]
     Active Substance: DEXAMETHASONE\TOBRAMYCIN
     Dosage: 1 GTT DROPS (01-JUN-2016)
     Route: 047
  90. TOBRADEX [Concomitant]
     Active Substance: DEXAMETHASONE\TOBRAMYCIN
     Dosage: 1 GTT DROPS (01-JUN-2016)
     Route: 047
  91. TOBRADEX [Concomitant]
     Active Substance: DEXAMETHASONE\TOBRAMYCIN
     Dosage: 1 GTT DROPS (01-JUN-2016)
     Route: 047
  92. TOBRADEX [Concomitant]
     Active Substance: DEXAMETHASONE\TOBRAMYCIN
     Dosage: 1 GTT DROPS (01-JUN-2016)
     Route: 047
  93. TOBRADEX [Concomitant]
     Active Substance: DEXAMETHASONE\TOBRAMYCIN
     Dosage: 1 GTT DROPS (01-JUN-2016)
     Route: 047
  94. ONDANSETRON [Concomitant]
     Active Substance: ONDANSETRON
     Indication: Prophylaxis
     Dosage: 8 MILLIGRAM, BID,TWICE DAILY FOR 3 DAYS POST
     Route: 048
     Dates: end: 20150722
  95. ONDANSETRON [Concomitant]
     Active Substance: ONDANSETRON
     Dosage: 8 MG, 2XAC/DAY(TWICE DAILY FOR 3 DAYS POST CHEMO
     Route: 048
     Dates: start: 20150721, end: 20150722
  96. FELODIPINE [Concomitant]
     Active Substance: FELODIPINE
     Indication: Product used for unknown indication
     Dosage: 2.5 MG, QD (START DATE: 30-OCT-2016)
     Route: 048
  97. FELODIPINE [Concomitant]
     Active Substance: FELODIPINE
     Dosage: 2.5 MG, 1X/DAY
     Route: 048
     Dates: start: 20161030
  98. FENTANYL [Concomitant]
     Active Substance: FENTANYL
     Indication: Product used for unknown indication
     Dosage: 200MICROGRAM (START DATE:31-MAY-2016)
     Route: 042
     Dates: end: 20160601
  99. FENTANYL [Concomitant]
     Active Substance: FENTANYL
     Dosage: 200 UG, UNK
     Route: 042
     Dates: start: 20160531, end: 20160601
  100. CLOPIDOGREL [Concomitant]
     Active Substance: CLOPIDOGREL BISULFATE
     Indication: Prophylaxis
     Dosage: 75 MG, 1X/DAY
     Route: 048
  101. CLOPIDOGREL [Concomitant]
     Active Substance: CLOPIDOGREL BISULFATE
     Dosage: 75 MILLIGRAM, QD,
     Route: 048
     Dates: start: 20161130
  102. CLOPIDOGREL [Concomitant]
     Active Substance: CLOPIDOGREL BISULFATE
     Dosage: 75 MG, 1X/DAY
     Route: 048
     Dates: start: 20161130
  103. DEXAMETHASONE [Concomitant]
     Active Substance: DEXAMETHASONE
     Indication: Prophylaxis
     Dosage: 8 MG, BID,BD  FOR  3 DAYS(21-JUL-2015)
     Route: 048
     Dates: start: 20150721, end: 20150722
  104. DEXAMETHASONE [Concomitant]
     Active Substance: DEXAMETHASONE
     Dosage: 1 GTT DROPS, START 01-JUN-2016
     Route: 048
  105. DEXAMETHASONE [Concomitant]
     Active Substance: DEXAMETHASONE
     Dosage: BD  FOR  3 DAYS
     Route: 048
     Dates: start: 20150721, end: 20150722
  106. DIAMOX SEQUELS [Concomitant]
     Active Substance: ACETAZOLAMIDE
     Indication: Retinal detachment
     Dosage: 1 UNK
     Route: 047
  107. DIAMOX SEQUELS [Concomitant]
     Active Substance: ACETAZOLAMIDE
     Dosage: 1 GTT DROPS
     Route: 047
     Dates: start: 20160601, end: 20160604
  108. ALENDRONIC ACID [Concomitant]
     Active Substance: ALENDRONIC ACID
     Indication: Osteopenia
     Dosage: 70 MG, QW (05-FEB-2018)
     Route: 048
     Dates: start: 20180205
  109. CALCIUM CARBONATE [Concomitant]
     Active Substance: CALCIUM CARBONATE
     Indication: Osteopenia
     Dosage: 500 MG, BID (05-FEB-2018)
     Route: 048
  110. CALCIUM CARBONATE [Concomitant]
     Active Substance: CALCIUM CARBONATE
     Dosage: 500 MG, BID (05-FEB-2018)
     Route: 048
  111. CALCIUM CARBONATE [Concomitant]
     Active Substance: CALCIUM CARBONATE
     Dosage: 500 MG, QD (ONCE A DAY), START 05-FEB-2018
     Route: 048
  112. CALCIUM CARBONATE [Concomitant]
     Active Substance: CALCIUM CARBONATE
     Dosage: 500 MG, 2X/DAY
     Route: 048
     Dates: start: 20180205
  113. CALCIUM CARBONATE [Concomitant]
     Active Substance: CALCIUM CARBONATE
     Dosage: 500 MG, 2X/DAY
     Route: 048
     Dates: start: 20180205
  114. CALCIUM CARBONATE [Concomitant]
     Active Substance: CALCIUM CARBONATE
     Dosage: UNK
     Route: 065
  115. CANDESARTAN [Concomitant]
     Active Substance: CANDESARTAN
     Indication: Product used for unknown indication
     Dosage: 32 MILLIGRAM, QD (2013)
     Route: 048
  116. CANDESARTAN [Concomitant]
     Active Substance: CANDESARTAN
     Dosage: 32 MG, 1X/DAY
     Route: 048
     Dates: start: 2013
  117. CO-DYDRAMOL [Concomitant]
     Active Substance: ACETAMINOPHEN\DIHYDROCODEINE
     Indication: Back pain
     Dosage: 500 MILLIGRAM, PRN
     Route: 048
     Dates: start: 201701
  118. CO-DYDRAMOL [Concomitant]
     Active Substance: ACETAMINOPHEN\DIHYDROCODEINE
     Dosage: 500 MILLIGRAM, PRN
     Route: 048
     Dates: start: 201701
  119. INDAPAMIDE [Concomitant]
     Active Substance: INDAPAMIDE
     Indication: Prophylaxis
     Dosage: 2.5 MG, QD
     Route: 048
     Dates: start: 2016
  120. LIDOCAINE [Concomitant]
     Active Substance: LIDOCAINE
     Indication: Pain
     Dosage: 1 DOSAGE FORM, PRN (START: 05-APR-2019)
     Route: 062
  121. LIDOCAINE [Concomitant]
     Active Substance: LIDOCAINE
     Dosage: UNK, AS NEEDED
     Route: 062
     Dates: start: 20190405
  122. MORPHINE SULFATE [Concomitant]
     Active Substance: MORPHINE SULFATE
     Indication: Pain
     Dosage: 5 MG, PRN (START: 05-APR-2019)
     Route: 048
     Dates: start: 20190405
  123. TRIMETHOPRIM [Concomitant]
     Active Substance: TRIMETHOPRIM
     Indication: Urinary tract infection
     Dosage: 200 MG, QD (START: 19-OCT-2018)
     Route: 048
     Dates: end: 20181023
  124. TRIMETHOPRIM [Concomitant]
     Active Substance: TRIMETHOPRIM
     Dosage: 200 MG, 1X/DAY
     Route: 048
     Dates: start: 20181019, end: 20181023
  125. TOBRAMYCIN [Concomitant]
     Active Substance: TOBRAMYCIN
     Indication: Premedication
     Dosage: 10 MILLIGRAM, Q3W
     Route: 042
     Dates: end: 20151126
  126. TOBRAMYCIN [Concomitant]
     Active Substance: TOBRAMYCIN
     Dosage: UNK
     Route: 065
  127. TOBRAMYCIN [Concomitant]
     Active Substance: TOBRAMYCIN
     Indication: Premedication
     Dosage: 200 MG, QD START DATE: 19-OCT-2018
     Route: 048
     Dates: start: 20181019, end: 20181023
  128. DIHYDROCODEINE BITARTRATE [Concomitant]
     Active Substance: DIHYDROCODEINE BITARTRATE
     Indication: Back pain
     Dosage: 500 MILLIGRAM, PRN
     Route: 048
     Dates: start: 201701
  129. IBUPROFEN [Concomitant]
     Active Substance: IBUPROFEN
     Indication: Back pain
     Dosage: 1200 MILLIGRAM, ONCE A DAY
     Route: 048
  130. IBUPROFEN [Concomitant]
     Active Substance: IBUPROFEN
     Dosage: 1200 MILLIGRAM, ONCE A DAY
     Route: 065
     Dates: start: 20150918
  131. IMODIUM [Concomitant]
     Active Substance: LOPERAMIDE HYDROCHLORIDE
     Indication: Diarrhoea
     Dosage: 4 MG, AS NECESSARY
     Route: 065
  132. IMODIUM [Concomitant]
     Active Substance: LOPERAMIDE HYDROCHLORIDE
     Dosage: 4 MILLIGRAM, PRN
     Route: 065
     Dates: start: 20150730
  133. SENNA [Concomitant]
     Active Substance: SENNA LEAF\SENNOSIDES\SENNOSIDES A AND B
     Dosage: 15 MILLIGRAM, ONCE A DAY
     Route: 065
     Dates: start: 20150721

REACTIONS (18)
  - Retinal detachment [Recovered/Resolved with Sequelae]
  - Rectal haemorrhage [Recovered/Resolved]
  - Condition aggravated [Recovered/Resolved]
  - Pleural effusion [Recovered/Resolved]
  - Ejection fraction decreased [Recovered/Resolved]
  - Osteopenia [Not Recovered/Not Resolved]
  - Presyncope [Recovered/Resolved]
  - Haemorrhoids [Recovered/Resolved with Sequelae]
  - Constipation [Recovered/Resolved]
  - Nausea [Recovered/Resolved]
  - Alopecia [Recovered/Resolved]
  - Dyspnoea [Recovered/Resolved]
  - Headache [Not Recovered/Not Resolved]
  - Fatigue [Not Recovered/Not Resolved]
  - Diarrhoea [Recovered/Resolved]
  - Back pain [Recovered/Resolved]
  - Weight decreased [Recovered/Resolved]
  - Dizziness [Recovered/Resolved]

NARRATIVE: CASE EVENT DATE: 20150721
